FAERS Safety Report 5615621-8 (Version None)
Quarter: 2008Q1

REPORT INFORMATION
  Report Type: 
  Country: None (occurrence: None)
  Receive Date: 20080206
  Receipt Date: 20080128
  Transmission Date: 20080703
  Serious: Yes (Other)
  Sender: FDA-Public Use
  Company Number: B0360460A

PATIENT
  Sex: Female

DRUGS (2)
  1. PAROXETINE HYDROCHLORIDE [Suspect]
     Indication: PANIC REACTION
     Route: 065
     Dates: start: 20010108
  2. DIAZEPAM [Concomitant]
     Indication: ANXIETY
     Route: 065
     Dates: start: 20011204

REACTIONS (15)
  - AGGRESSION [None]
  - AMENORRHOEA [None]
  - ANXIETY [None]
  - COLD SWEAT [None]
  - DEPENDENCE [None]
  - DISSOCIATION [None]
  - DIZZINESS [None]
  - DRUG WITHDRAWAL SYNDROME [None]
  - HYPERHIDROSIS [None]
  - INTENTIONAL SELF-INJURY [None]
  - MEMORY IMPAIRMENT [None]
  - PANIC ATTACK [None]
  - SUICIDAL IDEATION [None]
  - TREMOR [None]
  - WEIGHT DECREASED [None]
